FAERS Safety Report 17567920 (Version 1)
Quarter: 2020Q1

REPORT INFORMATION
  Report Type: Spontaneous
  Country: GB (occurrence: GB)
  Receive Date: 20200321
  Receipt Date: 20200321
  Transmission Date: 20200409
  Serious: Yes (Other)
  Sender: FDA-Public Use
  Company Number: GB-TEVA-2020-GB-1204439

PATIENT
  Age: 72 Year
  Sex: Male
  Weight: 82.55 kg

DRUGS (5)
  1. SOLIFENACIN SUCCINATE. [Suspect]
     Active Substance: SOLIFENACIN SUCCINATE
     Indication: URINARY INCONTINENCE
     Dosage: 5 MG
     Route: 048
     Dates: start: 20200101, end: 20200102
  2. ACCORD-UK HYDROCORTISONE [Concomitant]
  3. STEXEROL-D3 [Concomitant]
  4. LOSARTAN. [Concomitant]
     Active Substance: LOSARTAN
  5. AMLODIPINE [Concomitant]
     Active Substance: AMLODIPINE BESYLATE

REACTIONS (1)
  - Addison^s disease [Recovered/Resolved]

NARRATIVE: CASE EVENT DATE: 20200102
